FAERS Safety Report 14056086 (Version 2)
Quarter: 2017Q4

REPORT INFORMATION
  Report Type: Report from Study
  Country: US (occurrence: US)
  Receive Date: 20171006
  Receipt Date: 20171122
  Transmission Date: 20180321
  Serious: No
  Sender: FDA-Public Use
  Company Number: US-AMGEN-USASL2017149464

PATIENT
  Age: 78 Year
  Sex: Female

DRUGS (11)
  1. ASA [Concomitant]
     Active Substance: ASPIRIN
  2. DILTIAZEM. [Concomitant]
     Active Substance: DILTIAZEM
  3. PROTONIX [Concomitant]
     Active Substance: PANTOPRAZOLE SODIUM
  4. HCTZ [Concomitant]
     Active Substance: HYDROCHLOROTHIAZIDE
  5. ELIQUIS [Concomitant]
     Active Substance: APIXABAN
  6. IMDUR [Concomitant]
     Active Substance: ISOSORBIDE MONONITRATE
  7. COQ [Concomitant]
  8. RANEXA [Concomitant]
     Active Substance: RANOLAZINE
  9. REPATHA [Suspect]
     Active Substance: EVOLOCUMAB
     Indication: HYPERCHOLESTEROLAEMIA
     Dosage: 140 MG, Q2WK
     Route: 065
     Dates: start: 2015
  10. COREG [Concomitant]
     Active Substance: CARVEDILOL
  11. XANAX [Concomitant]
     Active Substance: ALPRAZOLAM

REACTIONS (2)
  - General physical health deterioration [Not Recovered/Not Resolved]
  - Tremor [Not Recovered/Not Resolved]
